FAERS Safety Report 5351708-5 (Version None)
Quarter: 2007Q2

REPORT INFORMATION
  Report Type: 
  Country: None (occurrence: None)
  Receive Date: 20070521
  Receipt Date: 20070221
  Transmission Date: 20071010
  Serious: No
  Sender: FDA-Public Use
  Company Number: WAES 0702USA03897

PATIENT
  Age: 90 Year
  Sex: Female
  Weight: 68.4932 kg

DRUGS (11)
  1. JANUVIA [Suspect]
     Indication: DIABETES MELLITUS
     Dosage: 100 MG DAILY PO
     Route: 048
     Dates: start: 20061109, end: 20070313
  2. DIGITEK [Concomitant]
  3. DIOVAN [Concomitant]
  4. GLIPIZIDE [Concomitant]
  5. LIPITOR [Concomitant]
  6. NORVASC [Concomitant]
  7. CLONIDINE HCL [Concomitant]
  8. FUROSEMIDE [Concomitant]
  9. METOPROLOL SUCCINATE [Concomitant]
  10. POTASSIUM CHLORIDE [Concomitant]
  11. MULTI-VITAMINS [Concomitant]

REACTIONS (5)
  - BRAIN NATRIURETIC PEPTIDE INCREASED [None]
  - CARDIAC FAILURE CONGESTIVE [None]
  - DYSPNOEA [None]
  - SNEEZING [None]
  - WEIGHT INCREASED [None]
